FAERS Safety Report 5982260-9 (Version None)
Quarter: 2008Q4

REPORT INFORMATION
  Report Type: 
  Country: None (occurrence: None)
  Receive Date: 20081208
  Receipt Date: 20081202
  Transmission Date: 20090506
  Serious: Yes (Other)
  Sender: FDA-Public Use
  Company Number: B0510323A

PATIENT
  Age: 12 Year
  Sex: Male

DRUGS (6)
  1. FLUNASE (JAPAN) [Suspect]
     Dosage: 25MCG TWICE PER DAY
     Route: 045
     Dates: start: 20070101
  2. PREDONINE [Suspect]
     Indication: URTICARIA
     Dosage: 15MG PER DAY
     Route: 048
     Dates: start: 20070317, end: 20070320
  3. PREDONINE [Suspect]
     Dosage: 5MG PER DAY
     Route: 048
     Dates: start: 20070321, end: 20070325
  4. PREDONINE [Suspect]
     Dosage: 15MG PER DAY
     Route: 048
     Dates: start: 20071029, end: 20071101
  5. ONON [Concomitant]
     Route: 048
  6. PATANOL [Concomitant]
     Indication: CONJUNCTIVITIS
     Route: 031
     Dates: start: 20070521

REACTIONS (2)
  - CATARACT SUBCAPSULAR [None]
  - VISUAL ACUITY REDUCED [None]
